FAERS Safety Report 16957953 (Version 2)
Quarter: 2020Q2

REPORT INFORMATION
  Report Type: Report from Study
  Country: US (occurrence: US)
  Receive Date: 20191024
  Receipt Date: 20200515
  Transmission Date: 20200713
  Serious: Yes (Hospitalization, Other)
  Sender: FDA-Public Use
  Company Number: US-ASTELLAS-2019US028024

PATIENT
  Sex: Male

DRUGS (18)
  1. CALCITRIOL. [Concomitant]
     Active Substance: CALCITRIOL
     Indication: PRODUCT USED FOR UNKNOWN INDICATION
     Dosage: 0.25 ?G, UNKNOWN FREQ.
     Route: 048
  2. ELDERTONIC [Concomitant]
     Dosage: 0.6 MG, THRICE DAILY
     Route: 048
  3. AMLODIPINE BESILATE [Concomitant]
     Active Substance: AMLODIPINE BESYLATE
     Indication: PRODUCT USED FOR UNKNOWN INDICATION
     Route: 048
  4. ELDERTONIC [Concomitant]
     Route: 048
  5. LUPRON [Concomitant]
     Active Substance: LEUPROLIDE ACETATE
     Indication: PRODUCT USED FOR UNKNOWN INDICATION
     Route: 030
  6. ELDERTONIC [Concomitant]
     Indication: PRODUCT USED FOR UNKNOWN INDICATION
     Dosage: 0.5 MG, THRICE DAILY
     Route: 048
  7. ELDERTONIC [Concomitant]
     Route: 048
  8. ENZALUTAMIDE [Suspect]
     Active Substance: ENZALUTAMIDE
     Indication: HORMONE-REFRACTORY PROSTATE CANCER
     Route: 048
     Dates: start: 201712
  9. ASPIRIN [ACETYLSALICYLIC ACID] [Concomitant]
     Active Substance: ASPIRIN
     Indication: PRODUCT USED FOR UNKNOWN INDICATION
     Route: 048
  10. PROLIA [Concomitant]
     Active Substance: DENOSUMAB
     Indication: PRODUCT USED FOR UNKNOWN INDICATION
     Dosage: 60 MG/ML, UNKNOWN FREQ.
     Route: 058
  11. CYMBALTA [Concomitant]
     Active Substance: DULOXETINE HYDROCHLORIDE
     Indication: PRODUCT USED FOR UNKNOWN INDICATION
     Route: 048
  12. ELDERTONIC [Concomitant]
     Route: 048
  13. ELDERTONIC [Concomitant]
     Dosage: 0.7 MG, THRICE DAILY
     Route: 048
  14. FUROSEMIDE. [Concomitant]
     Active Substance: FUROSEMIDE
     Indication: PRODUCT USED FOR UNKNOWN INDICATION
     Route: 048
  15. TAMSULOSIN [Concomitant]
     Active Substance: TAMSULOSIN
     Indication: PRODUCT USED FOR UNKNOWN INDICATION
     Dosage: 0.4 MG, UNKNOWN FREQ.
     Route: 048
  16. ELDERTONIC [Concomitant]
     Dosage: 0.7 MG, THRICE DAILY
     Route: 048
  17. PRAVASTATIN SODIUM. [Concomitant]
     Active Substance: PRAVASTATIN SODIUM
     Indication: PRODUCT USED FOR UNKNOWN INDICATION
     Route: 048
  18. ELDERTONIC [Concomitant]
     Route: 048

REACTIONS (10)
  - Rash pruritic [Unknown]
  - Clostridium difficile colitis [Unknown]
  - Sepsis [Unknown]
  - Hot flush [Not Recovered/Not Resolved]
  - Culture urine positive [Unknown]
  - Nocturia [Not Recovered/Not Resolved]
  - Acute kidney injury [Unknown]
  - Escherichia test positive [Unknown]
  - Fatigue [Not Recovered/Not Resolved]
  - Confusional state [Unknown]
